FAERS Safety Report 9424210 (Version 1)
Quarter: 2013Q3

REPORT INFORMATION
  Report Type: Report from Study
  Country: US (occurrence: US)
  Receive Date: 20130729
  Receipt Date: 20130729
  Transmission Date: 20140515
  Serious: Yes (Other)
  Sender: FDA-Public Use
  Company Number: PHEH2013US015820

PATIENT
  Sex: Female

DRUGS (8)
  1. EXTAVIA [Suspect]
     Indication: MULTIPLE SCLEROSIS
     Dosage: 0.3 MG, QOD
     Route: 058
     Dates: start: 20130121
  2. ACTONEL [Concomitant]
     Dosage: UNK UKN, UNK
  3. CREON [Concomitant]
     Dosage: UNK UKN, UNK
  4. GLIMEPIRIDE [Concomitant]
     Dosage: UNK UKN, UNK
  5. LISINOPRIL HCTZ [Concomitant]
     Dosage: UNK UKN, UNK
  6. PREVACID [Concomitant]
     Dosage: UNK UKN, UNK
  7. SIMVASTATIN [Concomitant]
     Dosage: UNK UKN, UNK
  8. LANTUS [Concomitant]
     Dosage: UNK UKN, UNK

REACTIONS (1)
  - Herpes zoster [Not Recovered/Not Resolved]
